FAERS Safety Report 7578258-X (Version None)
Quarter: 2011Q2

REPORT INFORMATION
  Report Type: 
  Country: None (occurrence: None)
  Receive Date: 20110628
  Receipt Date: 20110623
  Transmission Date: 20111010
  Serious: Yes (Other)
  Sender: FDA-Public Use
  Company Number: SK-JNJFOC-20110611694

PATIENT
  Sex: Female

DRUGS (1)
  1. STELARA [Suspect]
     Indication: PSORIASIS
     Dosage: STANDARD DOSING: THE PATIENT TOOK 1ST DOSE, AFTER MONTH SECOND DOSE AND LAST TIME 3RD DOSE
     Route: 058
     Dates: start: 20110201

REACTIONS (1)
  - OEDEMA [None]
